FAERS Safety Report 5720271-9 (Version None)
Quarter: 2008Q2

REPORT INFORMATION
  Report Type: 
  Country: None (occurrence: None)
  Receive Date: 20080428
  Receipt Date: 20080417
  Transmission Date: 20081010
  Serious: Yes (Hospitalization)
  Sender: FDA-Public Use
  Company Number: BE-ROCHE-553578

PATIENT
  Sex: Female
  Weight: 83.7 kg

DRUGS (3)
  1. CAPECITABINE [Suspect]
     Indication: BREAST CANCER
     Dosage: LAST DOSE PRIOR TO SAE: 3 APRIL 2008. FREQUENCY 825 MG/M2, 2 PER DAY FROM DAY 1 TO 14.
     Route: 048
     Dates: start: 20080211
  2. DOCETAXEL [Suspect]
     Indication: BREAST CANCER
     Dosage: LAST DOSE PRIOR TO SAE:23 MARCH 2008.  FREQUENCY REPORTED AS 75 MG/M^2 ON DAY 1.
     Route: 042
     Dates: start: 20080211
  3. GLUCOPHAGE [Concomitant]
     Route: 048

REACTIONS (2)
  - FEBRILE NEUTROPENIA [None]
  - SINUSITIS [None]
